FAERS Safety Report 9473611 (Version 2)
Quarter: 2013Q3

REPORT INFORMATION
  Report Type: Spontaneous
  Country: US (occurrence: US)
  Receive Date: 20130823
  Receipt Date: 20130823
  Transmission Date: 20140515
  Serious: Yes (Other)
  Sender: FDA-Public Use
  Company Number: US-BRISTOL-MYERS SQUIBB COMPANY-16677502

PATIENT
  Age: 85 Year
  Sex: Female
  Weight: 56.23 kg

DRUGS (12)
  1. SPRYCEL [Suspect]
     Indication: ACUTE LYMPHOCYTIC LEUKAEMIA
     Route: 048
     Dates: start: 20120615
  2. LEVOTHYROXINE [Concomitant]
  3. METOPROLOL [Concomitant]
  4. PANTOPRAZOLE [Concomitant]
  5. PREDNISONE [Concomitant]
  6. ACYCLOVIR [Concomitant]
  7. VITAMIN D3 [Concomitant]
  8. FOLIC ACID [Concomitant]
  9. VITAMIN B12 [Concomitant]
  10. FLUCONAZOLE [Concomitant]
  11. SENOKOT-S [Concomitant]
  12. FLUTICASONE [Concomitant]

REACTIONS (1)
  - Pancytopenia [Unknown]
